FAERS Safety Report 5728888-2 (Version None)
Quarter: 2008Q2

REPORT INFORMATION
  Report Type: 
  Country: None (occurrence: None)
  Receive Date: 20080506
  Receipt Date: 20080430
  Transmission Date: 20081010
  Serious: Yes (Other)
  Sender: FDA-Public Use
  Company Number: B0519157A

PATIENT
  Sex: Female

DRUGS (1)
  1. NIQUITIN 2MG [Suspect]
     Dosage: 14LOZ PER DAY
     Route: 002
     Dates: start: 20060101

REACTIONS (2)
  - ANXIETY [None]
  - DEPENDENCE [None]
